FAERS Safety Report 7950376-3 (Version None)
Quarter: 2011Q4

REPORT INFORMATION
  Report Type: 
  Country: None (occurrence: None)
  Receive Date: 20111130
  Receipt Date: 20111121
  Transmission Date: 20120403
  Serious: Yes (Life-Threatening, Hospitalization, Other)
  Sender: FDA-Public Use
  Company Number: DE-PFIZER INC-2011283938

PATIENT
  Age: 56 Year
  Sex: Male

DRUGS (4)
  1. ALLOPURINOL [Suspect]
     Indication: GOUT
     Dosage: 150 MG, 1X/DAY
     Route: 048
     Dates: start: 20110502, end: 20110615
  2. MICARDIS [Concomitant]
     Indication: HYPERTENSION
     Dosage: 80 MG, 1X/DAY
     Route: 048
     Dates: start: 20110516, end: 20110615
  3. RAMIPRIL [Suspect]
     Indication: HYPERTENSION
     Dosage: 5 MG, 1X/DAY
     Route: 048
     Dates: start: 20110501, end: 20110516
  4. VOLTAREN [Suspect]
     Indication: GOUT
     Dosage: 50 MG, 3X/DAY
     Route: 048
     Dates: start: 20110502, end: 20110615

REACTIONS (2)
  - RENAL FAILURE CHRONIC [None]
  - RENAL FAILURE ACUTE [None]
